FAERS Safety Report 7132936-5 (Version None)
Quarter: 2010Q4

REPORT INFORMATION
  Report Type: 
  Country: None (occurrence: None)
  Receive Date: 20101202
  Receipt Date: 20101115
  Transmission Date: 20110411
  Serious: Yes (Hospitalization)
  Sender: FDA-Public Use
  Company Number: DE-AMGEN-DEUCT2010004103

PATIENT

DRUGS (9)
  1. ETANERCEPT [Suspect]
     Indication: RHEUMATOID ARTHRITIS
     Dosage: 50 MG, QWK
     Dates: start: 20090908, end: 20091209
  2. ETANERCEPT [Suspect]
     Indication: POLYARTHRITIS
     Dosage: 25 MG, QWK
     Dates: start: 20091210
  3. ETANERCEPT [Suspect]
     Dosage: 25 MG, 2 TIMES/WK
     Dates: start: 20100101
  4. ETANERCEPT [Suspect]
     Dosage: 50 MG, WEEKLY
     Dates: start: 20100427, end: 20100723
  5. ETANERCEPT [Suspect]
     Dosage: UNK MG, UNK
     Dates: start: 20100815, end: 20101010
  6. ETANERCEPT [Suspect]
     Dosage: UNK
     Dates: start: 20101029
  7. METEX [Concomitant]
     Indication: RHEUMATOID ARTHRITIS
     Dosage: 15 MG, WEEKLY
     Route: 058
     Dates: start: 20090401
  8. METAMIZOLE [Concomitant]
     Indication: RHEUMATOID ARTHRITIS
     Dosage: UNK
     Dates: start: 20090401
  9. METAMIZOLE [Concomitant]
     Dosage: UNK
     Dates: start: 20090401

REACTIONS (1)
  - TENDON SHEATH INCISION [None]
